FAERS Safety Report 21052151 (Version 1)
Quarter: 2022Q3

REPORT INFORMATION
  Report Type: Spontaneous
  Country: PT (occurrence: PT)
  Receive Date: 20220707
  Receipt Date: 20220707
  Transmission Date: 20221027
  Serious: Yes (Hospitalization)
  Sender: FDA-Public Use
  Company Number: PT-LEO Pharma-343597

PATIENT
  Age: 32 Year
  Sex: Female

DRUGS (2)
  1. DALTEPARIN SODIUM [Suspect]
     Active Substance: DALTEPARIN SODIUM
     Indication: Pelvic venous thrombosis
     Dosage: 12500 IU, DAILY
  2. INNOHEP [Suspect]
     Active Substance: TINZAPARIN SODIUM
     Indication: Pelvic venous thrombosis
     Dosage: 1000 IU, 1X/DAY

REACTIONS (2)
  - Maternal exposure during pregnancy [Recovering/Resolving]
  - Type IV hypersensitivity reaction [Recovering/Resolving]
